FAERS Safety Report 7154056-6 (Version None)
Quarter: 2010Q4

REPORT INFORMATION
  Report Type: 
  Country: None (occurrence: None)
  Receive Date: 20101213
  Receipt Date: 20101207
  Transmission Date: 20110411
  Serious: Yes (Death, Other)
  Sender: FDA-Public Use
  Company Number: PHHY2010NL83115

PATIENT
  Sex: Male

DRUGS (3)
  1. ZOMETA [Suspect]
     Indication: PROSTATE CANCER METASTATIC
     Dosage: 4MG/5ML, UNK
  2. ZOMETA [Suspect]
     Dosage: 4MG/5ML, UNK
     Dates: start: 20101109
  3. SODIUM CHLORIDE [Concomitant]
     Dosage: 100ML BAG

REACTIONS (3)
  - DEATH [None]
  - GENERAL PHYSICAL HEALTH DETERIORATION [None]
  - PROSTATIC SPECIFIC ANTIGEN INCREASED [None]
